FAERS Safety Report 4953076-7 (Version None)
Quarter: 2006Q1

REPORT INFORMATION
  Report Type: 
  Country: None (occurrence: None)
  Receive Date: 20060324
  Receipt Date: 20060314
  Transmission Date: 20060701
  Serious: Yes (Hospitalization)
  Sender: FDA-Public Use
  Company Number: FR-GILEAD-2006-0009330

PATIENT
  Sex: Male
  Weight: 55 kg

DRUGS (12)
  1. TRUVADA [Suspect]
     Indication: HIV INFECTION
     Route: 048
     Dates: start: 20060224, end: 20060314
  2. TRUVADA [Suspect]
     Dates: start: 20060315, end: 20060317
  3. KALETRA [Concomitant]
     Indication: HIV INFECTION
     Route: 048
     Dates: start: 20060224, end: 20060314
  4. KALETRA [Concomitant]
     Dates: start: 20060315, end: 20060317
  5. KALETRA [Concomitant]
     Dates: start: 20060320
  6. FUZEON [Concomitant]
     Indication: HIV INFECTION
     Route: 058
     Dates: start: 20060224, end: 20060314
  7. FUZEON [Concomitant]
     Dates: start: 20060315, end: 20060317
  8. FUZEON [Concomitant]
     Dates: start: 20060320
  9. DALACINE [Concomitant]
     Indication: TOXOPLASMOSIS
     Route: 048
     Dates: start: 20060129, end: 20060314
  10. NEURONTIN [Concomitant]
     Route: 048
     Dates: start: 20060120, end: 20060314
  11. PYRIMETHAMINE TAB [Concomitant]
     Route: 048
     Dates: start: 20060120, end: 20060314
  12. SULFADIAZINE [Concomitant]
     Dates: start: 20060120

REACTIONS (10)
  - HYPERSENSITIVITY [None]
  - OEDEMA GENITAL [None]
  - OEDEMA PERIPHERAL [None]
  - PRURIGO [None]
  - PRURITUS [None]
  - PURPURA [None]
  - PYREXIA [None]
  - RASH MACULO-PAPULAR [None]
  - TESTICULAR SWELLING [None]
  - THROMBOCYTOPENIA [None]
